FAERS Safety Report 22110174 (Version 7)
Quarter: 2024Q1

REPORT INFORMATION
  Report Type: Spontaneous
  Country: US (occurrence: US)
  Receive Date: 20230317
  Receipt Date: 20240103
  Transmission Date: 20240409
  Serious: Yes (Hospitalization, Other)
  Sender: FDA-Public Use
  Company Number: US-PFIZER INC-PV202300051365

PATIENT
  Age: 70 Year
  Sex: Female

DRUGS (1)
  1. XELJANZ XR [Suspect]
     Active Substance: TOFACITINIB CITRATE
     Dosage: 11 MG

REACTIONS (10)
  - Drug dependence [Unknown]
  - Fall [Unknown]
  - Platelet count decreased [Unknown]
  - Tuberculosis [Unknown]
  - COVID-19 [Unknown]
  - Influenza [Unknown]
  - Pain [Unknown]
  - Bedridden [Unknown]
  - Illness [Unknown]
  - Epistaxis [Unknown]

NARRATIVE: CASE EVENT DATE: 20231206
